FAERS Safety Report 5651852-9 (Version None)
Quarter: 2008Q1

REPORT INFORMATION
  Report Type: 
  Country: None (occurrence: None)
  Receive Date: 20080305
  Receipt Date: 20080222
  Transmission Date: 20080703
  Serious: Yes (Other)
  Sender: FDA-Public Use
  Company Number: US-PFIZER INC-2008017648

PATIENT
  Sex: Female

DRUGS (13)
  1. CHANTIX [Suspect]
     Indication: SMOKING CESSATION THERAPY
     Route: 048
  2. CELEBREX [Concomitant]
  3. KLONOPIN [Concomitant]
  4. CYMBALTA [Concomitant]
  5. MIRALAX [Concomitant]
  6. GEODON [Concomitant]
  7. TRILEPTAL [Concomitant]
  8. AMIODARONE HCL [Concomitant]
  9. MOBIC [Concomitant]
  10. LISINOPRIL [Concomitant]
  11. RESTORIL [Concomitant]
  12. PREVACID [Concomitant]
  13. TRAZODONE HCL [Concomitant]

REACTIONS (1)
  - IRRITABLE BOWEL SYNDROME [None]
